FAERS Safety Report 21050459 (Version 1)
Quarter: 2022Q3

REPORT INFORMATION
  Report Type: Spontaneous
  Country: US (occurrence: US)
  Receive Date: 20220707
  Receipt Date: 20220707
  Transmission Date: 20221026
  Serious: No
  Sender: FDA-Public Use
  Company Number: None

PATIENT
  Age: 36 Year
  Sex: Female

DRUGS (4)
  1. PRAMIPEXOLE DIHYDROCHLORIDE [Suspect]
     Active Substance: PRAMIPEXOLE DIHYDROCHLORIDE
     Indication: Persistent genital arousal disorder
     Dosage: 0.125 MILLIGRAM, TID
     Route: 065
     Dates: start: 201911
  2. PRAMIPEXOLE DIHYDROCHLORIDE [Suspect]
     Active Substance: PRAMIPEXOLE DIHYDROCHLORIDE
     Dosage: 0.125 MILLIGRAM, BID, WITH 0.250 MG AT NIGHT
     Route: 065
     Dates: start: 2020
  3. PRAMIPEXOLE DIHYDROCHLORIDE [Suspect]
     Active Substance: PRAMIPEXOLE DIHYDROCHLORIDE
     Dosage: 0.250 MILLIGRAM, AT BED TIME
     Route: 065
     Dates: start: 2020
  4. PRAMIPEXOLE DIHYDROCHLORIDE [Suspect]
     Active Substance: PRAMIPEXOLE DIHYDROCHLORIDE
     Dosage: 0.125 MILLIGRAM, TID
     Route: 065
     Dates: start: 2020

REACTIONS (1)
  - Off label use [Unknown]
